FAERS Safety Report 5656845-3 (Version None)
Quarter: 2008Q1

REPORT INFORMATION
  Report Type: 
  Country: None (occurrence: None)
  Receive Date: 20080310
  Receipt Date: 20080304
  Transmission Date: 20080703
  Serious: Yes (Other)
  Sender: FDA-Public Use
  Company Number: FR-BRISTOL-MYERS SQUIBB COMPANY-14040224

PATIENT
  Age: 50 Year
  Sex: Male
  Weight: 57 kg

DRUGS (4)
  1. REYATAZ [Suspect]
     Dates: start: 20060608, end: 20080219
  2. ZIAGEN [Suspect]
     Dates: start: 20060608, end: 20080219
  3. NORVIR [Concomitant]
     Dates: start: 20060608, end: 20080219
  4. VIDEX [Concomitant]
     Dates: start: 20060608, end: 20080219

REACTIONS (2)
  - NEPHROLITHIASIS [None]
  - RENAL FAILURE [None]
